FAERS Safety Report 15630773 (Version 2)
Quarter: 2018Q4

REPORT INFORMATION
  Report Type: Spontaneous
  Country: US (occurrence: US)
  Receive Date: 20181119
  Receipt Date: 20181123
  Transmission Date: 20190205
  Serious: Yes (Disabling, Other)
  Sender: FDA-Public Use
  Company Number: US-ROCHE-2216755

PATIENT
  Age: 15 Year
  Sex: Male
  Weight: 74 kg

DRUGS (12)
  1. XOLAIR [Suspect]
     Active Substance: OMALIZUMAB
     Indication: ASTHMA
     Dosage: ONCE
     Route: 058
     Dates: start: 20181024, end: 20181031
  2. KETOTIFEN [Concomitant]
     Active Substance: KETOTIFEN
  3. EPIPEN [Concomitant]
     Active Substance: EPINEPHRINE
     Dosage: 2 PAK 0.3MG/03 ML
     Route: 065
  4. DYMISTA [Concomitant]
     Active Substance: AZELASTINE HYDROCHLORIDE\FLUTICASONE PROPIONATE
     Dosage: 1 PUFF TWICE EACH NOSTRIL DAILY?137-50MCG/ACT SUSPENSION
     Route: 065
  5. PROAIR HFA [Concomitant]
     Active Substance: ALBUTEROL SULFATE
  6. KETOFEN [Concomitant]
     Active Substance: KETOPROFEN
  7. OMEPRAZOLE. [Concomitant]
     Active Substance: OMEPRAZOLE
  8. ORAPRED [Concomitant]
     Active Substance: PREDNISOLONE SODIUM PHOSPHATE
     Route: 048
  9. PROMETHAZINE HCL [Concomitant]
     Active Substance: PROMETHAZINE HYDROCHLORIDE
     Dosage: EVERY 8 HRS AS NEEDED
     Route: 048
  10. AZELASTINE HCL [Concomitant]
     Active Substance: AZELASTINE HYDROCHLORIDE
     Dosage: 2 SPRAYES TWICE DAILY EACH NOSTRIL
     Route: 065
  11. ADVAIR HFA [Concomitant]
     Active Substance: FLUTICASONE PROPIONATE\SALMETEROL XINAFOATE
     Dosage: 500/50
     Route: 065
  12. QVAR [Concomitant]
     Active Substance: BECLOMETHASONE DIPROPIONATE
     Indication: ASTHMA
     Route: 065

REACTIONS (6)
  - Confusional state [Not Recovered/Not Resolved]
  - Abdominal pain [Unknown]
  - Diarrhoea [Unknown]
  - Ventricular extrasystoles [Unknown]
  - Arrhythmia [Unknown]
  - Fatigue [Unknown]

NARRATIVE: CASE EVENT DATE: 20181024
